FAERS Safety Report 11059979 (Version 2)
Quarter: 2016Q3

REPORT INFORMATION
  Report Type: Spontaneous
  Country: None (occurrence: US)
  Receive Date: 20150422
  Receipt Date: 20160725
  Transmission Date: 20161109
  Serious: Yes (Hospitalization, Other)
  Sender: FDA-Public Use
  Company Number: 201504-US-000721

PATIENT
  Age: 51 Year
  Sex: Male
  Weight: 130 kg

DRUGS (7)
  1. FLEET ENEMA [Suspect]
     Active Substance: SODIUM PHOSPHATE, DIBASIC\SODIUM PHOSPHATE, MONOBASIC
     Indication: CONSTIPATION
     Route: 054
     Dates: start: 201404, end: 201404
  2. LISINOPRIL. [Concomitant]
     Active Substance: LISINOPRIL
  3. COLCHICINE. [Concomitant]
     Active Substance: COLCHICINE
  4. MAGNESIUM CITRATE. [Concomitant]
     Active Substance: MAGNESIUM CITRATE
  5. HERBAL NOS [Concomitant]
     Active Substance: HERBALS
  6. TUMS [Suspect]
     Active Substance: CALCIUM CARBONATE
  7. ALEVE [Suspect]
     Active Substance: NAPROXEN SODIUM

REACTIONS (9)
  - Hypertensive nephropathy [Unknown]
  - Hypercalcaemia [Recovered/Resolved]
  - Chronic kidney disease [Not Recovered/Not Resolved]
  - Nephrocalcinosis [Unknown]
  - Acute kidney injury [Not Recovered/Not Resolved]
  - Anaemia [Unknown]
  - Acute phosphate nephropathy [Unknown]
  - Dehydration [Unknown]
  - Wrong technique in product usage process [None]

NARRATIVE: CASE EVENT DATE: 20140413
